FAERS Safety Report 5553326-2 (Version None)
Quarter: 2007Q4

REPORT INFORMATION
  Report Type: 
  Country: None (occurrence: None)
  Receive Date: 20071213
  Receipt Date: 20071210
  Transmission Date: 20080405
  Serious: Yes (Death, Other)
  Sender: FDA-Public Use
  Company Number: US-RB-008760-07

PATIENT
  Age: 25 Year
  Sex: Male

DRUGS (1)
  1. SUBOXONE [Suspect]
     Indication: DRUG USE FOR UNKNOWN INDICATION
     Dosage: DOSAGE UNKNOWN
     Route: 065
     Dates: end: 20070101

REACTIONS (9)
  - CARDIAC ARREST [None]
  - CARDIAC ENZYMES INCREASED [None]
  - COMA [None]
  - HEPATIC ENZYME INCREASED [None]
  - HYPOTENSION [None]
  - HYPOTHERMIA [None]
  - MYDRIASIS [None]
  - PUPILLARY REFLEX IMPAIRED [None]
  - RESPIRATORY ACIDOSIS [None]
